FAERS Safety Report 9778357 (Version 1)
Quarter: 2013Q4

REPORT INFORMATION
  Report Type: Spontaneous
  Country: JP (occurrence: JP)
  Receive Date: 20131223
  Receipt Date: 20131223
  Transmission Date: 20140711
  Serious: Yes (Death)
  Sender: FDA-Public Use
  Company Number: JP-PFIZER INC-2013362463

PATIENT
  Age: 37 Year
  Sex: Male

DRUGS (7)
  1. MEROPENEM [Suspect]
     Indication: PNEUMONIA
     Dosage: UNK
  2. CIPROFLOXACIN [Suspect]
     Indication: PNEUMONIA
     Dosage: UNK
  3. VANCOMYCIN HCL [Suspect]
     Indication: PNEUMONIA
     Dosage: UNK
  4. BASILIXIMAB [Concomitant]
     Indication: IMMUNOSUPPRESSION
     Dosage: UNK
  5. MYCOPHENOLATE MOFETIL [Concomitant]
     Indication: IMMUNOSUPPRESSION
     Dosage: UNK
  6. PREDNISOLONE [Concomitant]
     Indication: IMMUNOSUPPRESSION
     Dosage: 100 MG FOR 5 DAYS
  7. PREDNISOLONE [Concomitant]
     Dosage: TAPERED TO 15 MG, 1X/DAY

REACTIONS (1)
  - Drug ineffective [Fatal]
